FAERS Safety Report 14184283 (Version 1)
Quarter: 2017Q4

REPORT INFORMATION
  Report Type: Spontaneous
  Country: US (occurrence: US)
  Receive Date: 20171113
  Receipt Date: 20171113
  Transmission Date: 20180321
  Serious: No
  Sender: FDA-Public Use
  Company Number: US-ALLERGAN-1733515US

PATIENT
  Age: 57 Year
  Sex: Female

DRUGS (1)
  1. RAPAFLO [Suspect]
     Active Substance: SILODOSIN
     Indication: POLLAKIURIA
     Dosage: 8 MG, QD, DEPENDING ON HER BLOOD PRESSURE
     Route: 048

REACTIONS (3)
  - Hypotension [Unknown]
  - Off label use [Unknown]
  - Nocturia [Recovering/Resolving]
